FAERS Safety Report 5446807-3 (Version None)
Quarter: 2007Q3

REPORT INFORMATION
  Report Type: 
  Country: None (occurrence: None)
  Receive Date: 20070907
  Receipt Date: 20070828
  Transmission Date: 20080115
  Serious: Yes (Other)
  Sender: FDA-Public Use
  Company Number: US-PFIZER INC-2007072262

PATIENT
  Sex: Female
  Weight: 73.5 kg

DRUGS (5)
  1. LYRICA [Suspect]
     Indication: FIBROMYALGIA
  2. TRAZODONE HYDROCHLORIDE [Interacting]
     Indication: FIBROMYALGIA
  3. SEREVENT [Concomitant]
  4. ALBUTEROL [Concomitant]
  5. ZYRTEC [Concomitant]

REACTIONS (5)
  - DISTURBANCE IN ATTENTION [None]
  - DIZZINESS [None]
  - DRUG INTERACTION [None]
  - INTRAOCULAR PRESSURE INCREASED [None]
  - SOMNOLENCE [None]
